FAERS Safety Report 16939407 (Version 1)
Quarter: 2019Q4

REPORT INFORMATION
  Report Type: Spontaneous
  Country: JP (occurrence: JP)
  Receive Date: 20191021
  Receipt Date: 20191021
  Transmission Date: 20200122
  Serious: Yes (Other)
  Sender: FDA-Public Use
  Company Number: JP-TEVA-2019-JP-007141J

PATIENT
  Sex: Male

DRUGS (1)
  1. RANITIDINE TABLET 150MG TAIYO [Suspect]
     Active Substance: RANITIDINE
     Indication: PRODUCT USED FOR UNKNOWN INDICATION
     Route: 048

REACTIONS (1)
  - Meningioma malignant [Unknown]

NARRATIVE: CASE EVENT DATE: 201810
